FAERS Safety Report 4721248-2 (Version None)
Quarter: 2005Q3

REPORT INFORMATION
  Report Type: 
  Country: None (occurrence: None)
  Receive Date: 20050720
  Receipt Date: 20050708
  Transmission Date: 20060218
  Serious: Yes (Hospitalization, Other)
  Sender: FDA-Public Use
  Company Number: 2005058769

PATIENT
  Sex: Male

DRUGS (1)
  1. BEXTRA [Suspect]
     Indication: LOWER LIMB FRACTURE
     Dosage: 40 MG (40 MG, 1 IN 1 D) ORAL
     Route: 048
     Dates: start: 20050101, end: 20050301

REACTIONS (6)
  - BACTERIAL INFECTION [None]
  - BLISTER [None]
  - LOCALISED INFECTION [None]
  - POSTOPERATIVE INFECTION [None]
  - PRURITUS [None]
  - SUNBURN [None]
